FAERS Safety Report 13140514 (Version 1)
Quarter: 2017Q1

REPORT INFORMATION
  Report Type: Report from Study
  Country: US (occurrence: US)
  Receive Date: 20170123
  Receipt Date: 20170123
  Transmission Date: 20170428
  Serious: Yes (Other)
  Sender: FDA-Public Use
  Company Number: US-B.I. PHARMACEUTICALS,INC./RIDGEFIELD-2017-BI-002045

PATIENT
  Age: 60 Year
  Sex: Male

DRUGS (4)
  1. NEURONTIN [Concomitant]
     Active Substance: GABAPENTIN
     Indication: NEURALGIA
     Dosage: ONE CAPSULE THREE TIMES A DAY;  FORM STRENGTH: 300MG; FORMULATION: CAPSULE
     Route: 048
     Dates: start: 201610
  2. PHENERGAN [Concomitant]
     Active Substance: PROMETHAZINE HYDROCHLORIDE
     Indication: NAUSEA
     Dosage: AS NEEDED FOR NAUSEA;  FORM STRENGTH: 25MG; FORMULATION: CAPLET
     Route: 048
     Dates: start: 201610
  3. SPIRIVA [Suspect]
     Active Substance: TIOTROPIUM BROMIDE MONOHYDRATE
     Indication: CHRONIC OBSTRUCTIVE PULMONARY DISEASE
     Route: 055
     Dates: start: 201608
  4. NORCO [Concomitant]
     Active Substance: ACETAMINOPHEN\HYDROCODONE BITARTRATE
     Indication: PAIN
     Dosage: ONE TABLET EVERY 8 HOURS AS NEEDED FOR PAIN;  FORM STRENGTH: 10/325MG; FORMULATION: TABLET
     Route: 048
     Dates: start: 201610

REACTIONS (1)
  - Lung neoplasm malignant [Unknown]

NARRATIVE: CASE EVENT DATE: 201608
